FAERS Safety Report 21498801 (Version 1)
Quarter: 2022Q4

REPORT INFORMATION
  Report Type: Spontaneous
  Country: US (occurrence: None)
  Receive Date: 20221024
  Receipt Date: 20221024
  Transmission Date: 20230113
  Serious: Yes (Hospitalization)
  Sender: FDA-Public Use
  Company Number: None

PATIENT
  Sex: Male

DRUGS (17)
  1. NUTROPIN AQ [Suspect]
     Active Substance: SOMATROPIN
     Indication: Adrenocortical insufficiency acute
     Dosage: 10MG/2ML SUBCUTANEOUS??INJECT 0.3 MG UNDER THE SKIN (SUBCUTANEOUS INJECTION) DAILY. DISCARD PEN 28 D
     Route: 058
     Dates: start: 20220125
  2. ALLEGRA-D [Concomitant]
     Active Substance: FEXOFENADINE HYDROCHLORIDE\PSEUDOEPHEDRINE HYDROCHLORIDE
  3. ANDROGEL [Concomitant]
     Active Substance: TESTOSTERONE
  4. ARMODAFINIL [Concomitant]
     Active Substance: ARMODAFINIL
  5. ARTHRTS PAIN [Concomitant]
  6. ASPIRIN [Concomitant]
     Active Substance: ASPIRIN
  7. CALCIUM [Concomitant]
     Active Substance: CALCIUM
  8. CELEBREX [Concomitant]
     Active Substance: CELECOXIB
  9. LEXAPRO [Concomitant]
     Active Substance: ESCITALOPRAM OXALATE
  10. VITAMINS [Concomitant]
     Active Substance: VITAMINS
  11. PREDNISONE [Concomitant]
     Active Substance: PREDNISONE
  12. SYNTHROID [Concomitant]
     Active Substance: LEVOTHYROXINE SODIUM
  13. SYSTANE (HYPROMELLOSE 2910 (4000 MPA.S)) [Concomitant]
     Active Substance: HYPROMELLOSE 2910 (4000 MPA.S)
  14. TIZANIDINE [Concomitant]
     Active Substance: TIZANIDINE
  15. TRICOR [Concomitant]
     Active Substance: FENOFIBRATE
  16. VITAMIN D3 [Concomitant]
     Active Substance: CHOLECALCIFEROL
  17. ZANAFLEX [Concomitant]
     Active Substance: TIZANIDINE HYDROCHLORIDE

REACTIONS (2)
  - Hospitalisation [None]
  - Therapy interrupted [None]
